FAERS Safety Report 18226581 (Version 1)
Quarter: 2020Q3

REPORT INFORMATION
  Report Type: Report from Study
  Country: SA (occurrence: SA)
  Receive Date: 20200903
  Receipt Date: 20200903
  Transmission Date: 20201103
  Serious: Yes (Other)
  Sender: FDA-Public Use
  Company Number: SA-ELI_LILLY_AND_COMPANY-SA202008012361

PATIENT
  Sex: Male

DRUGS (1)
  1. FORTEO [Suspect]
     Active Substance: TERIPARATIDE
     Indication: OSTEOPOROSIS
     Dosage: 20 UG, DAILY
     Route: 058
     Dates: start: 20180311, end: 20180610

REACTIONS (8)
  - Pain in extremity [Not Recovered/Not Resolved]
  - Gait inability [Not Recovered/Not Resolved]
  - Musculoskeletal stiffness [Not Recovered/Not Resolved]
  - Rheumatic disorder [Not Recovered/Not Resolved]
  - Hand fracture [Unknown]
  - Fall [Unknown]
  - Dizziness [Not Recovered/Not Resolved]
  - Arteriosclerosis [Not Recovered/Not Resolved]
